FAERS Safety Report 15733095 (Version 1)
Quarter: 2018Q4

REPORT INFORMATION
  Report Type: Spontaneous
  Country: IT (occurrence: IT)
  Receive Date: 20181218
  Receipt Date: 20181218
  Transmission Date: 20190205
  Serious: Yes (Death, Hospitalization, Other)
  Sender: FDA-Public Use
  Company Number: IT-ROCHE-2228389

PATIENT
  Age: 82 Year
  Sex: Male

DRUGS (2)
  1. OBINUTUZUMAB. [Suspect]
     Active Substance: OBINUTUZUMAB
     Indication: CHRONIC LYMPHOCYTIC LEUKAEMIA
     Dosage: AT 100 MG ON DAY +1, 900 MG +2, THEN AT 1000 MG ON DAYS 8 AND 15 OF CYCLE 1 AND DAY 1 OF CYCLES 2-6
     Route: 042
  2. CHLORAMBUCIL [Suspect]
     Active Substance: CHLORAMBUCIL
     Indication: CHRONIC LYMPHOCYTIC LEUKAEMIA
     Dosage: AT 0.5 MG/KG ON DAYS 1 AND 15 OF CYCLES 1-6
     Route: 048

REACTIONS (2)
  - Neutropenia [Unknown]
  - Pneumonia [Fatal]
